FAERS Safety Report 6739158-8 (Version None)
Quarter: 2010Q2

REPORT INFORMATION
  Report Type: 
  Country: None (occurrence: None)
  Receive Date: 20100525
  Receipt Date: 20100518
  Transmission Date: 20101027
  Serious: Yes (Death)
  Sender: FDA-Public Use
  Company Number: US-JNJFOC-20090902539

PATIENT
  Sex: Female
  Weight: 63.5 kg

DRUGS (10)
  1. FENTANYL CITRATE [Suspect]
     Indication: PAIN
     Route: 062
  2. DIAZEPAM [Concomitant]
     Route: 065
  3. NORDIAZEPAM [Concomitant]
     Route: 065
  4. ECGONINE [Concomitant]
     Route: 065
  5. BENZOYLECGONINE [Concomitant]
     Route: 065
  6. HYDROCODONE [Concomitant]
     Route: 065
  7. AMITRIPTYLINE [Concomitant]
     Route: 065
  8. NORTRIPTYLINE HCL [Concomitant]
     Route: 065
  9. CITALOPRAM [Concomitant]
     Route: 065
  10. ALBUTEROL [Concomitant]

REACTIONS (4)
  - DEVICE MALFUNCTION [None]
  - DRUG INEFFECTIVE [None]
  - DRUG TOXICITY [None]
  - TREATMENT NONCOMPLIANCE [None]
